FAERS Safety Report 18703777 (Version 1)
Quarter: 2021Q1

REPORT INFORMATION
  Report Type: Spontaneous
  Country: NL (occurrence: NL)
  Receive Date: 20210106
  Receipt Date: 20210106
  Transmission Date: 20210419
  Serious: Yes (Congenital Anomaly)
  Sender: FDA-Public Use
  Company Number: NL-TEVA-2020-NL-1864351

PATIENT
  Sex: Female
  Weight: 3.4 kg

DRUGS (2)
  1. METHYLDOPA TABLET 250MG / BRAND NAME NOT SPECIFIED [Suspect]
     Active Substance: METHYLDOPA
     Indication: PRODUCT USED FOR UNKNOWN INDICATION
     Dosage: 750 MILLIGRAM DAILY;  THERAPY START DATE AND THERAPY END DATE : ASKED BUT UNKNOWN
  2. LITHIUM CARBONATE TABLET MGA 400MG / CAMCOLIT TABLET 400MG [Suspect]
     Active Substance: LITHIUM CARBONATE
     Indication: BIPOLAR DISORDER
     Dosage: 1000 MILLIGRAM DAILY; THERAPY START DATE AND THERAPY END DATE : ASKED BUT UNKNOWN

REACTIONS (2)
  - Maternal exposure during pregnancy [Unknown]
  - Cyst [Unknown]
